FAERS Safety Report 25989553 (Version 1)
Quarter: 2025Q4

REPORT INFORMATION
  Report Type: Spontaneous
  Country: GB (occurrence: GB)
  Receive Date: 20251103
  Receipt Date: 20251103
  Transmission Date: 20260117
  Serious: Yes (Other)
  Sender: BOEHRINGER INGELHEIM
  Company Number: GB-MHRA-TPP24753825C11093242YC1761737399484

PATIENT
  Age: 84 Year
  Sex: Female
  Weight: 67 kg

DRUGS (17)
  1. EMPAGLIFLOZIN [Suspect]
     Active Substance: EMPAGLIFLOZIN
     Indication: Ill-defined disorder
     Dates: start: 20250711
  2. POLYETHYLENE GLYCOL 3350\POTASSIUM CHLORIDE\SODIUM BICARBONATE\SODIUM [Concomitant]
     Active Substance: POLYETHYLENE GLYCOL 3350\POTASSIUM CHLORIDE\SODIUM BICARBONATE\SODIUM CHLORIDE
     Indication: Ill-defined disorder
     Dosage: 1 SACHET TWICE A DAY AS NEEDED FOR CONSTIPATION...?FORM OF ADMIN: TPP YC - PLEASE RECLASSIFY
     Dates: start: 20250806, end: 20250821
  3. POTASSIUM CHLORIDE [Concomitant]
     Active Substance: POTASSIUM CHLORIDE
     Indication: Ill-defined disorder
     Dosage: TAKE TWO TABLETS THREE TIMES A DAY FOR 3 DAYS ONLY?FORM OF ADMIN: TPP YC - PLEASE RECLASSIFY
     Dates: start: 20251016, end: 20251023
  4. NITROFURANTOIN [Concomitant]
     Active Substance: NITROFURANTOIN
     Indication: Ill-defined disorder
     Dosage: TAKE ONE TWICE DAILY?FORM OF ADMIN: TPP YC - PLEASE RECLASSIFY
     Dates: start: 20251023
  5. CITALOPRAM [Concomitant]
     Active Substance: CITALOPRAM
     Indication: Ill-defined disorder
     Dosage: ONE DAILY?FORM OF ADMIN: TPP YC - PLEASE RECLASSIFY
     Dates: start: 20230806
  6. COCODAMOL [Concomitant]
     Active Substance: ACETAMINOPHEN\CODEINE PHOSPHATE
     Indication: Ill-defined disorder
     Dosage: TAKE 1 OR 2 4 TIMES/DAY FOR PAIN?FORM OF ADMIN: TPP YC - PLEASE RECLASSIFY
  7. DABIGATRAN ETEXILATE [Concomitant]
     Active Substance: DABIGATRAN ETEXILATE
     Indication: Ill-defined disorder
     Dosage: 1 TO BE TAKEN TWICE DAILY?FORM OF ADMIN: TPP YC - PLEASE RECLASSIFY
  8. FERROUS SULFATE [Concomitant]
     Active Substance: FERROUS SULFATE
     Indication: Ill-defined disorder
     Dosage: 1 DAILY?FORM OF ADMIN: TPP YC - PLEASE RECLASSIFY
  9. NITROGLYCERIN [Concomitant]
     Active Substance: NITROGLYCERIN
     Indication: Ill-defined disorder
     Dosage: USE ONE PUFF FOR CHEST PAIN. REPEAT AFTER 5 MIN...?FORM OF ADMIN: TPP YC - PLEASE RECLASSIFY
  10. ISOTARD [Concomitant]
     Indication: Ill-defined disorder
     Dosage: TAKE 2 TABLETS EACH MORNING?FORM OF ADMIN: TPP YC - PLEASE RECLASSIFY
  11. OMEPRAZOLE [Concomitant]
     Active Substance: OMEPRAZOLE
     Indication: Ill-defined disorder
     Dosage: ONE IN  THE MORNING?FORM OF ADMIN: TPP YC - PLEASE RECLASSIFY
  12. RANOLAZINE [Concomitant]
     Active Substance: RANOLAZINE
     Indication: Ill-defined disorder
     Dosage: TAKE ONE TWICE DAILY?FORM OF ADMIN: TPP YC - PLEASE RECLASSIFY
  13. ROSUVASTATIN [Concomitant]
     Active Substance: ROSUVASTATIN
     Indication: Ill-defined disorder
     Dosage: TAKE ONE DAILY?FORM OF ADMIN: TPP YC - PLEASE RECLASSIFY
  14. DICLOFENAC DIETHYLAMINE [Concomitant]
     Active Substance: DICLOFENAC DIETHYLAMINE
     Indication: Ill-defined disorder
     Dosage: APPLY 3 TIMES/DAY FOR BACK PAIN?FORM OF ADMIN: TPP YC - PLEASE RECLASSIFY
  15. BISOPROLOL [Concomitant]
     Active Substance: BISOPROLOL
     Indication: Ill-defined disorder
     Dosage: TAKE ONE DAILY?FORM OF ADMIN: TPP YC - PLEASE RECLASSIFY
  16. FUROSEMIDE [Concomitant]
     Active Substance: FUROSEMIDE
     Indication: Ill-defined disorder
     Dosage: TAKE ONE EACH MORNING AND ONCE AT LUNCHTIME?FORM OF ADMIN: TPP YC - PLEASE RECLASSIFY
  17. CALCIUM CARBONATE [Concomitant]
     Active Substance: CALCIUM CARBONATE
     Indication: Ill-defined disorder
     Dosage: TAKE TWO TWICE DAILY?FORM OF ADMIN: TPP YC - PLEASE RECLASSIFY

REACTIONS (2)
  - Hallucination [Recovered/Resolved]
  - Urinary tract infection [Recovered/Resolved]
